FAERS Safety Report 7692766-2 (Version None)
Quarter: 2011Q3

REPORT INFORMATION
  Report Type: 
  Country: None (occurrence: None)
  Receive Date: 20110819
  Receipt Date: 20110808
  Transmission Date: 20111222
  Serious: Yes (Other)
  Sender: FDA-Public Use
  Company Number: US-ELI_LILLY_AND_COMPANY-US201103001719

PATIENT
  Sex: Male
  Weight: 70.748 kg

DRUGS (3)
  1. FORTEO [Suspect]
     Dosage: 20 UG, QD
  2. FORTEO [Suspect]
     Indication: OSTEOPOROSIS
     Dosage: 20 UG, DAILY (1/D)
     Dates: start: 20101228
  3. FORTEO [Suspect]
     Dosage: 20 UG, QD

REACTIONS (3)
  - MULTIPLE MYELOMA [None]
  - ARTHRALGIA [None]
  - SLEEP DISORDER DUE TO A GENERAL MEDICAL CONDITION [None]
